FAERS Safety Report 12477784 (Version 1)
Quarter: 2016Q2

REPORT INFORMATION
  Report Type: Report from Study
  Country: US (occurrence: US)
  Receive Date: 20160617
  Receipt Date: 20160617
  Transmission Date: 20160815
  Serious: Yes (Hospitalization)
  Sender: FDA-Public Use
  Company Number: US-PFIZER INC-2016307170

PATIENT
  Age: 72 Year
  Sex: Female
  Weight: 51 kg

DRUGS (6)
  1. 5-FLUOROURACIL /00098801/ [Suspect]
     Active Substance: FLUOROURACIL
     Dosage: 2400 MG/M2, OVER 46-48 HOURS ON DAY 1, FREQ: CYCLICAL
     Route: 042
     Dates: start: 20150401, end: 20150401
  2. 5-FLUOROURACIL /00098801/ [Suspect]
     Active Substance: FLUOROURACIL
     Indication: COLON CANCER
     Dosage: 400 MG/M2, ON DAY 1 FOLLOWED BY 5-FU, FREQ: CYCLICAL
     Route: 040
     Dates: start: 20150401, end: 20150401
  3. BLINDED CELECOXIB [Suspect]
     Active Substance: CELECOXIB
     Indication: COLON CANCER
     Dosage: UNK, QD, STARTING ON DAY 1 OF CYCLE 2 OF FOLFOX, CONTINUED TO 3 YEARS
     Route: 048
     Dates: start: 20150414
  4. BLINDED PLACEBO [Suspect]
     Active Substance: INVESTIGATIONAL PRODUCT
     Indication: COLON CANCER
     Dosage: UNK, QD, STARTING ON DAY 1 OF CYCLE 2 OF FOLFOX, CONTINUED TO 3 YEARS
     Route: 048
     Dates: start: 20150414
  5. CALCIUM FOLINATE [Suspect]
     Active Substance: LEUCOVORIN CALCIUM
     Indication: COLON CANCER
     Dosage: 400 MG/M2, OVER 2 HOURS ON DAY 1, FREQ: CYCLICAL
     Route: 042
     Dates: start: 20150401, end: 20150401
  6. ELOXATIN [Suspect]
     Active Substance: OXALIPLATIN
     Indication: COLON CANCER
     Dosage: 85 MG/M2, OVER 2 HOURS ON DAY 1, FREQ: CYCLICAL
     Route: 042
     Dates: start: 20150401, end: 20150401

REACTIONS (1)
  - Hypokalaemia [Recovered/Resolved]

NARRATIVE: CASE EVENT DATE: 20150414
